FAERS Safety Report 4290601-6 (Version None)
Quarter: 2004Q1

REPORT INFORMATION
  Report Type: 
  Country: None (occurrence: None)
  Receive Date: 20040209
  Receipt Date: 20040126
  Transmission Date: 20041129
  Serious: Yes (Life-Threatening, Hospitalization)
  Sender: FDA-Public Use
  Company Number: 04P-056-0248956-00

PATIENT
  Age: 21 Year
  Sex: Female

DRUGS (2)
  1. DEPAKENE [Suspect]
     Indication: EPILEPSY
     Dosage: 1500 MG, 1 IN 1 D, PER ORAL
     Route: 048
  2. LAMOTRIGINE [Suspect]
     Indication: EPILEPSY
     Dosage: 25 MG, 1 IN 1 D, PER ORAL
     Route: 048
     Dates: start: 20030723, end: 20030726

REACTIONS (7)
  - GENERAL PHYSICAL HEALTH DETERIORATION [None]
  - HEADACHE [None]
  - HEPATIC ENZYME INCREASED [None]
  - LYMPHADENOPATHY [None]
  - PROTHROMBIN LEVEL DECREASED [None]
  - PYREXIA [None]
  - RASH MACULAR [None]
